FAERS Safety Report 9927865 (Version 1)
Quarter: 2014Q1

REPORT INFORMATION
  Report Type: Spontaneous
  Country: US (occurrence: None)
  Receive Date: 20140226
  Receipt Date: 20140226
  Transmission Date: 20141002
  Serious: Yes (Death, Life-Threatening, Hospitalization, Disabling, Other)
  Sender: FDA-Public Use
  Company Number: None

PATIENT
  Age: 51 Year
  Sex: Female
  Weight: 89.36 kg

DRUGS (1)
  1. TAXOTERE [Suspect]
     Indication: INVASIVE DUCTAL BREAST CARCINOMA

REACTIONS (11)
  - Vomiting [None]
  - Abdominal pain [None]
  - Enterocolitis [None]
  - Neutropenia [None]
  - Shock [None]
  - Pleural effusion [None]
  - Respiratory failure [None]
  - Systemic candida [None]
  - Oedema [None]
  - Deep vein thrombosis [None]
  - Pulmonary embolism [None]
